FAERS Safety Report 11418818 (Version 1)
Quarter: 2015Q3

REPORT INFORMATION
  Report Type: Spontaneous
  Country: US (occurrence: None)
  Receive Date: 20150825
  Receipt Date: 20150825
  Transmission Date: 20151125
  Serious: No
  Sender: FDA-Public Use
  Company Number: None

PATIENT
  Age: 24 Year
  Sex: Female
  Weight: 84.37 kg

DRUGS (1)
  1. TUBERCULIN PURIFIED PROTEIN DERIVATIVE 5TU/0.1ML SANOFI PASTEU R [Suspect]
     Active Substance: TUBERCULIN PURIFIED PROTEIN DERIVATIVE
     Indication: TUBERCULIN TEST
     Route: 023
     Dates: start: 20150803

REACTIONS (3)
  - Peripheral swelling [None]
  - Rash macular [None]
  - Arthralgia [None]

NARRATIVE: CASE EVENT DATE: 20150803
